FAERS Safety Report 9577510 (Version 1)
Quarter: 2013Q4

REPORT INFORMATION
  Report Type: Spontaneous
  Country: US (occurrence: US)
  Receive Date: 20131001
  Receipt Date: 20131001
  Transmission Date: 20140711
  Serious: No
  Sender: FDA-Public Use
  Company Number: US-AMGEN-USASP2013008056

PATIENT
  Sex: Female
  Weight: 81.63 kg

DRUGS (8)
  1. ENBREL [Suspect]
     Indication: PSORIATIC ARTHROPATHY
     Dosage: 50 MG, QWK
     Route: 058
  2. CARDIZEM CD [Concomitant]
     Dosage: 180 MG/24
  3. HYDROCHLOROTH [Concomitant]
     Dosage: 25 MG, UNK
  4. CLONIDINE [Concomitant]
     Dosage: 0.1 MG, UNK
  5. LIDODERM [Concomitant]
     Dosage: 5 %, UNK
  6. VITAMIN D                          /00107901/ [Concomitant]
     Dosage: 1000 UNIT, UNK
  7. LORTAB                             /00607101/ [Concomitant]
     Dosage: 10-500 MG
  8. ASPIRIN LOW [Concomitant]
     Dosage: 81 MG, EC

REACTIONS (1)
  - Bronchitis [Unknown]
